FAERS Safety Report 20473644 (Version 3)
Quarter: 2022Q3

REPORT INFORMATION
  Report Type: Report from Study
  Country: US (occurrence: US)
  Receive Date: 20220215
  Receipt Date: 20220919
  Transmission Date: 20221027
  Serious: Yes (Other)
  Sender: FDA-Public Use
  Company Number: US-NOVARTISPH-NVSC2022US030193

PATIENT
  Sex: Female

DRUGS (1)
  1. PROMACTA [Suspect]
     Active Substance: ELTROMBOPAG OLAMINE
     Indication: Product used for unknown indication
     Dosage: UNK
     Route: 065

REACTIONS (7)
  - Lymphoma [Unknown]
  - Autoimmune disorder [Unknown]
  - Infection [Unknown]
  - Feeling abnormal [Unknown]
  - Somnolence [Unknown]
  - Abdominal discomfort [Unknown]
  - Platelet count decreased [Unknown]
